FAERS Safety Report 25208817 (Version 2)
Quarter: 2025Q2

REPORT INFORMATION
  Report Type: Report from Study
  Country: CA (occurrence: CA)
  Receive Date: 20250417
  Receipt Date: 20250424
  Transmission Date: 20250716
  Serious: Yes (Other)
  Sender: CSL BEHRING
  Company Number: CA-BEH-2025198359

PATIENT
  Age: 60 Year
  Sex: Female

DRUGS (18)
  1. HIZENTRA [Suspect]
     Active Substance: HUMAN IMMUNOGLOBULIN G
     Indication: Primary immunodeficiency syndrome
     Dosage: UNK, QW
     Route: 065
     Dates: start: 20141217
  2. HIZENTRA [Suspect]
     Active Substance: HUMAN IMMUNOGLOBULIN G
     Dosage: 8 G, QW
     Route: 058
     Dates: start: 20141217
  3. HIZENTRA [Suspect]
     Active Substance: HUMAN IMMUNOGLOBULIN G
     Dosage: 8 G, QW
     Route: 058
     Dates: start: 20141217
  4. HIZENTRA [Suspect]
     Active Substance: HUMAN IMMUNOGLOBULIN G
     Route: 065
     Dates: start: 20250417
  5. ROSUVASTATIN [Concomitant]
     Active Substance: ROSUVASTATIN
  6. AZITHROMYCIN [Concomitant]
     Active Substance: AZITHROMYCIN
  7. IRON [Concomitant]
     Active Substance: IRON
  8. MELATONIN [Concomitant]
     Active Substance: MELATONIN
  9. TRAZODONE [Concomitant]
     Active Substance: TRAZODONE HYDROCHLORIDE
  10. CHOLECALCIFEROL [Concomitant]
     Active Substance: CHOLECALCIFEROL
  11. CALCIUM [Concomitant]
     Active Substance: CALCIUM
  12. LANSOPRAZOLE [Concomitant]
     Active Substance: LANSOPRAZOLE
  13. RITALIN [Concomitant]
     Active Substance: METHYLPHENIDATE HYDROCHLORIDE
  14. DULOXETINE [Concomitant]
     Active Substance: DULOXETINE
  15. PRIMIDONE [Concomitant]
     Active Substance: PRIMIDONE
  16. OLANZAPINE [Concomitant]
     Active Substance: OLANZAPINE
  17. EDOXABAN [Concomitant]
     Active Substance: EDOXABAN
  18. PREGABALIN [Concomitant]
     Active Substance: PREGABALIN

REACTIONS (11)
  - Intellectual disability [Unknown]
  - Apnoea [Unknown]
  - Fine motor skill dysfunction [Unknown]
  - Product use complaint [Unknown]
  - Therapy interrupted [Unknown]
  - Tremor [Unknown]
  - Product dose omission issue [Unknown]
  - Product use complaint [Unknown]
  - Tremor [Unknown]
  - Infusion site oedema [Unknown]
  - Infusion site erythema [Unknown]

NARRATIVE: CASE EVENT DATE: 20250417
